FAERS Safety Report 7614569-7 (Version None)
Quarter: 2011Q3

REPORT INFORMATION
  Report Type: 
  Country: None (occurrence: None)
  Receive Date: 20110708
  Receipt Date: 20110317
  Transmission Date: 20111222
  Serious: No
  Sender: FDA-Public Use
  Company Number: 2011IP000048

PATIENT
  Age: 87 Year
  Sex: Male
  Weight: 77.1115 kg

DRUGS (5)
  1. CITRACAL [Concomitant]
  2. CENTRUM SILVER /01292501/ [Concomitant]
  3. BEPREVE [Suspect]
     Indication: EYE ALLERGY
     Dosage: 1 GTT;QD;OPH
     Route: 047
     Dates: start: 20110304, end: 20110306
  4. COMBIGAN [Concomitant]
  5. TRAVATAN [Concomitant]

REACTIONS (3)
  - OCULAR HYPERAEMIA [None]
  - EYE PAIN [None]
  - OCULAR DISCOMFORT [None]
